FAERS Safety Report 23726307 (Version 2)
Quarter: 2024Q2

REPORT INFORMATION
  Report Type: Spontaneous
  Country: FR (occurrence: FR)
  Receive Date: 20240410
  Receipt Date: 20240625
  Transmission Date: 20240715
  Serious: Yes (Other)
  Sender: FDA-Public Use
  Company Number: FR-JNJFOC-20240421008

PATIENT
  Age: 16 Year
  Sex: Male

DRUGS (3)
  1. MINOXIDIL [Suspect]
     Active Substance: MINOXIDIL
     Indication: Alopecia
     Dosage: TWICE A DAY, MORNING AND EVENING
     Route: 003
     Dates: start: 2020
  2. MINOXIDIL [Suspect]
     Active Substance: MINOXIDIL
     Indication: Alopecia
     Dosage: TWICE A DAY, MORNING AND EVENING
     Route: 065
     Dates: start: 2020
  3. AMOXICILLIN [Concomitant]
     Active Substance: AMOXICILLIN
     Indication: Tonsillitis
     Route: 065

REACTIONS (8)
  - Erectile dysfunction [Not Recovered/Not Resolved]
  - Product use issue [Unknown]
  - Contraindicated product administered [Unknown]
  - Feeling abnormal [Unknown]
  - Product dispensing issue [Unknown]
  - Contraindicated product prescribed [Unknown]
  - Alopecia [Recovering/Resolving]
  - Product dose omission issue [Unknown]

NARRATIVE: CASE EVENT DATE: 20200101
